FAERS Safety Report 8909893 (Version 2)
Quarter: 2013Q1

REPORT INFORMATION
  Report Type: Spontaneous
  Country: US (occurrence: US)
  Receive Date: 20121115
  Receipt Date: 20130208
  Transmission Date: 20140127
  Serious: Yes (Other)
  Sender: FDA-Public Use
  Company Number: US-PFIZER INC-2012283022

PATIENT
  Age: 63 Year
  Sex: Female
  Weight: 79 kg

DRUGS (2)
  1. LYRICA [Suspect]
     Indication: NEURALGIA
     Route: 048
  2. PREDNISONE [Concomitant]
     Dosage: UNK

REACTIONS (8)
  - Road traffic accident [Unknown]
  - Peripheral nerve injury [Unknown]
  - Head injury [Unknown]
  - Back injury [Unknown]
  - Neuralgia [Unknown]
  - Tinnitus [Unknown]
  - Headache [Unknown]
  - Vertigo [Unknown]
